FAERS Safety Report 5625742-1 (Version None)
Quarter: 2008Q1

REPORT INFORMATION
  Report Type: 
  Country: None (occurrence: None)
  Receive Date: 20080214
  Receipt Date: 20080214
  Transmission Date: 20080703
  Serious: Yes (Hospitalization)
  Sender: FDA-Public Use
  Company Number: None

PATIENT
  Age: 49 Year
  Sex: Male
  Weight: 99 kg

DRUGS (3)
  1. HEPARIN [Suspect]
     Dosage: 5000 UNITS 1 TIME IV BOLUS
     Route: 040
     Dates: start: 20080211, end: 20080211
  2. HEPARIN [Suspect]
     Dosage: 5000 UNITS 1 TIME IV BOLUS
     Route: 040
     Dates: start: 20080211, end: 20080211
  3. HEPARIN [Suspect]

REACTIONS (3)
  - HYPOTENSION [None]
  - RASH [None]
  - TREMOR [None]
